FAERS Safety Report 14220713 (Version 2)
Quarter: 2017Q4

REPORT INFORMATION
  Report Type: Spontaneous
  Country: US (occurrence: US)
  Receive Date: 20171124
  Receipt Date: 20171206
  Transmission Date: 20180321
  Serious: Yes (Hospitalization)
  Sender: FDA-Public Use
  Company Number: US-ROCHE-2025627

PATIENT
  Age: 70 Year
  Sex: Male

DRUGS (1)
  1. ALECENSA [Suspect]
     Active Substance: ALECTINIB HYDROCHLORIDE
     Indication: HEPATIC CANCER
     Dosage: 4 CAPSULES TWICE A DAY
     Route: 048
     Dates: start: 201710

REACTIONS (4)
  - Intentional product use issue [Unknown]
  - Dysphagia [Unknown]
  - Fall [Unknown]
  - Off label use [Unknown]

NARRATIVE: CASE EVENT DATE: 20171110
